FAERS Safety Report 26036852 (Version 1)
Quarter: 2025Q4

REPORT INFORMATION
  Report Type: Spontaneous
  Country: US (occurrence: US)
  Receive Date: 20251112
  Receipt Date: 20251112
  Transmission Date: 20260117
  Serious: No
  Sender: PARATEK PHARMACEUTICALS
  Company Number: US-PARATEK PHARMACEUTICALS, INC.-2025PTK00051

PATIENT
  Age: 56 Year
  Sex: Female

DRUGS (2)
  1. OMADACYCLINE [Suspect]
     Active Substance: OMADACYCLINE
     Indication: Mycobacterium abscessus infection
  2. OMADACYCLINE [Suspect]
     Active Substance: OMADACYCLINE
     Indication: Medical device site infection

REACTIONS (8)
  - Drug resistance [Unknown]
  - Wound secretion [Unknown]
  - Skin mass [Unknown]
  - Pain [Unknown]
  - Treatment noncompliance [Unknown]
  - Erythema [Unknown]
  - Drug ineffective for unapproved indication [Unknown]
  - Unevaluable event [Unknown]
